FAERS Safety Report 9709525 (Version 2)
Quarter: 2014Q1

REPORT INFORMATION
  Report Type: Spontaneous
  Country: US (occurrence: US)
  Receive Date: 20131126
  Receipt Date: 20140316
  Transmission Date: 20141002
  Serious: No
  Sender: FDA-Public Use
  Company Number: US-009507513-1311USA010170

PATIENT
  Age: 25 Year
  Sex: Female

DRUGS (2)
  1. PROVENTIL [Suspect]
     Indication: ASTHMA
     Dosage: 2 DF, EVERY 4 TO 6 HOURS AS NEEDED
     Route: 055
     Dates: start: 2003
  2. SINGULAIR [Concomitant]

REACTIONS (2)
  - Throat irritation [Recovered/Resolved]
  - Adverse event [Unknown]
